FAERS Safety Report 14463306 (Version 1)
Quarter: 2018Q1

REPORT INFORMATION
  Report Type: Spontaneous
  Country: US (occurrence: US)
  Receive Date: 20180130
  Receipt Date: 20180130
  Transmission Date: 20180509
  Serious: No
  Sender: FDA-Public Use
  Company Number: US-TEIKOKU PHARMA USA-TPU2017-00806

PATIENT
  Sex: Female
  Weight: 61.29 kg

DRUGS (6)
  1. LIDODERM [Suspect]
     Active Substance: LIDOCAINE
     Indication: BACK PAIN
  2. LIDODERM [Suspect]
     Active Substance: LIDOCAINE
     Indication: HERPES ZOSTER
  3. LIDODERM [Suspect]
     Active Substance: LIDOCAINE
     Indication: NEURALGIA
     Route: 061
  4. LIDODERM [Suspect]
     Active Substance: LIDOCAINE
     Indication: INJECTION SITE ANAESTHESIA
  5. LIDODERM [Suspect]
     Active Substance: LIDOCAINE
     Indication: BONE CYST
  6. LIDODERM [Suspect]
     Active Substance: LIDOCAINE
     Indication: MENISCUS INJURY

REACTIONS (7)
  - Kidney infection [Unknown]
  - Intervertebral disc injury [Unknown]
  - Expired product administered [Unknown]
  - Meniscus injury [Unknown]
  - Bone cyst [Unknown]
  - Somnolence [Unknown]
  - Cough [Unknown]

NARRATIVE: CASE EVENT DATE: 2017
